FAERS Safety Report 5008704-7 (Version None)
Quarter: 2006Q2

REPORT INFORMATION
  Report Type: 
  Country: None (occurrence: None)
  Receive Date: 20060518
  Receipt Date: 20060505
  Transmission Date: 20061013
  Serious: Yes (Other)
  Sender: FDA-Public Use
  Company Number: 2006053202

PATIENT
  Age: 50 Year
  Sex: Female

DRUGS (10)
  1. BEXTRA [Suspect]
     Indication: PAIN
     Dosage: (10 MG)
     Dates: start: 20040226
  2. BACLOFEN [Concomitant]
  3. ULTRACET [Concomitant]
  4. LEVOTHYROID (LEVOTHYROID SODIUM) [Concomitant]
  5. FOLIC ACID [Concomitant]
  6. ACIPHEX [Concomitant]
  7. METHOTREXATE [Concomitant]
  8. NORTRIPTYLINE (NORTRIPTYLINE) [Concomitant]
  9. LASIX [Concomitant]
  10. REMICADE [Concomitant]

REACTIONS (1)
  - STEVENS-JOHNSON SYNDROME [None]
